FAERS Safety Report 9316150 (Version 1)
Quarter: 2013Q2

REPORT INFORMATION
  Report Type: Spontaneous
  Country: US (occurrence: None)
  Receive Date: 20130528
  Receipt Date: 20130528
  Transmission Date: 20140414
  Serious: Yes (Hospitalization, Other)
  Sender: FDA-Public Use
  Company Number: None

PATIENT
  Age: 52 Year
  Sex: Male
  Weight: 81.4 kg

DRUGS (4)
  1. BRENTUXIMAB VEDOTIN [Suspect]
     Dosage: BV 1.8 MG/KG (150 MG) Q 21 DAYS IVPB
     Dates: start: 20130328, end: 20130418
  2. NEXIUM [Concomitant]
  3. ACYCLOVIR [Concomitant]
  4. OXYCODONE [Concomitant]

REACTIONS (2)
  - Pancreatitis [None]
  - Oesophagitis [None]
